FAERS Safety Report 26100899 (Version 3)
Quarter: 2025Q4

REPORT INFORMATION
  Report Type: Report from Study
  Country: CA (occurrence: CA)
  Receive Date: 20251128
  Receipt Date: 20251216
  Transmission Date: 20260117
  Serious: Yes (Hospitalization)
  Sender: ALEXION PHARMACEUTICALS
  Company Number: CA-AstraZeneca-CH-00998135A

PATIENT
  Sex: Female

DRUGS (6)
  1. SOLIRIS [Suspect]
     Active Substance: ECULIZUMAB
     Indication: Atypical haemolytic uraemic syndrome
     Dosage: 900 MILLIGRAM, Q48HX2
  2. SOLIRIS [Suspect]
     Active Substance: ECULIZUMAB
     Dosage: 900 MILLIGRAM, Q48HX2
  3. SOLIRIS [Suspect]
     Active Substance: ECULIZUMAB
     Dosage: 900 MILLIGRAM, Q72HX3
     Dates: start: 20250929, end: 20251005
  4. SOLIRIS [Suspect]
     Active Substance: ECULIZUMAB
     Dosage: 900 MILLIGRAM, QWX4
     Dates: start: 20251014, end: 20251104
  5. SOLIRIS [Suspect]
     Active Substance: ECULIZUMAB
     Dosage: 900 MILLIGRAM, QWX4
     Dates: start: 20251118
  6. MEROPENEM [Concomitant]
     Active Substance: MEROPENEM
     Indication: Prophylaxis
     Dosage: UNK
     Route: 065

REACTIONS (7)
  - Viral infection [Unknown]
  - Amnesia [Not Recovered/Not Resolved]
  - Confusional state [Recovering/Resolving]
  - Quality of life decreased [Unknown]
  - Lymphoma [Not Recovered/Not Resolved]
  - Communication disorder [Unknown]
  - Dementia [Unknown]

NARRATIVE: CASE EVENT DATE: 20250101
